FAERS Safety Report 21822890 (Version 1)
Quarter: 2023Q1

REPORT INFORMATION
  Report Type: Spontaneous
  Country: US (occurrence: None)
  Receive Date: 20230104
  Receipt Date: 20230104
  Transmission Date: 20230418
  Serious: Yes (Disabling, Other)
  Sender: FDA-Public Use
  Company Number: None

PATIENT
  Age: 63 Year
  Sex: Male
  Weight: 103.5 kg

DRUGS (11)
  1. CARBOCAINE [Suspect]
     Active Substance: MEPIVACAINE HYDROCHLORIDE
     Indication: Dental operation
     Dates: start: 20220804, end: 20221020
  2. CARBOCAINE [Suspect]
     Active Substance: MEPIVACAINE HYDROCHLORIDE
     Indication: Allergy test
  3. CARVEDILOL [Concomitant]
     Active Substance: CARVEDILOL
  4. TAMSULOSIN [Concomitant]
  5. SIMVASTATIN [Concomitant]
     Active Substance: SIMVASTATIN
  6. cetirazine [Concomitant]
  7. FLOMAX [Concomitant]
     Active Substance: TAMSULOSIN HYDROCHLORIDE
  8. FLONASE [Concomitant]
     Active Substance: FLUTICASONE PROPIONATE
  9. ALBUTEROL [Concomitant]
     Active Substance: ALBUTEROL
  10. meclazine [Concomitant]
  11. ASPIRIN [Concomitant]
     Active Substance: ASPIRIN

REACTIONS (3)
  - Hypertension [None]
  - Nausea [None]
  - Malaise [None]

NARRATIVE: CASE EVENT DATE: 20220804
